FAERS Safety Report 5912353-3 (Version None)
Quarter: 2008Q4

REPORT INFORMATION
  Report Type: 
  Country: None (occurrence: None)
  Receive Date: 20081007
  Receipt Date: 20081007
  Transmission Date: 20090506
  Serious: Yes (Hospitalization, Other)
  Sender: FDA-Public Use
  Company Number: None

PATIENT
  Age: 46 Year
  Sex: Female
  Weight: 58.9676 kg

DRUGS (1)
  1. ZITHROMAX [Suspect]
     Indication: NASOPHARYNGITIS
     Dates: start: 20051111, end: 20051112

REACTIONS (10)
  - ANAPHYLACTIC REACTION [None]
  - BLISTER [None]
  - HAEMORRHAGE [None]
  - HYPERAESTHESIA [None]
  - IMPAIRED WORK ABILITY [None]
  - SCAR [None]
  - SKIN ATROPHY [None]
  - SKIN LACERATION [None]
  - URTICARIA [None]
  - VARICELLA [None]
